FAERS Safety Report 13350651 (Version 1)
Quarter: 2017Q1

REPORT INFORMATION
  Report Type: Report from Study
  Country: HR (occurrence: HR)
  Receive Date: 20170320
  Receipt Date: 20170320
  Transmission Date: 20170429
  Serious: Yes (Death)
  Sender: FDA-Public Use
  Company Number: HR-WEST-WARD PHARMACEUTICALS CORP.-HR-H14001-17-00799

PATIENT
  Age: 53 Year
  Sex: Female

DRUGS (3)
  1. PENICILLIN [Concomitant]
     Active Substance: PENICILLIN
     Indication: NEPHROPATHY TOXIC
     Route: 065
  2. VANCOMYCIN [Suspect]
     Active Substance: VANCOMYCIN
     Indication: PRODUCT USED FOR UNKNOWN INDICATION
     Route: 065
  3. CIPROFLOXACIN. [Concomitant]
     Active Substance: CIPROFLOXACIN
     Indication: NEPHROPATHY TOXIC
     Route: 065

REACTIONS (1)
  - Acute kidney injury [Fatal]
